FAERS Safety Report 7933379-4 (Version None)
Quarter: 2011Q4

REPORT INFORMATION
  Report Type: 
  Country: None (occurrence: None)
  Receive Date: 20111122
  Receipt Date: 20111122
  Transmission Date: 20120403
  Serious: No
  Sender: FDA-Public Use
  Company Number: None

PATIENT
  Age: 73 Year
  Sex: Female
  Weight: 120 kg

DRUGS (4)
  1. LASIX [Concomitant]
  2. VANCOMYCIN [Suspect]
     Indication: FEBRILE NEUTROPENIA
     Dosage: 2 G X 1, 1.5 G X 1 FOR 4 DOSES
     Route: 042
     Dates: start: 20110108, end: 20110117
  3. CEFTAZIDIME [Concomitant]
  4. ZAROXOLYN [Concomitant]

REACTIONS (1)
  - NEPHROPATHY TOXIC [None]
